FAERS Safety Report 5072838-1 (Version None)
Quarter: 2006Q3

REPORT INFORMATION
  Report Type: 
  Country: None (occurrence: None)
  Receive Date: 20060802
  Receipt Date: 20060724
  Transmission Date: 20061208
  Serious: Yes (Hospitalization)
  Sender: FDA-Public Use
  Company Number: 2006JP002011

PATIENT
  Age: 72 Year
  Sex: Female

DRUGS (6)
  1. VESICARE [Suspect]
     Dosage: 5 MG, ORAL
     Route: 048
     Dates: start: 20060613, end: 20060627
  2. BLOPRESS (CANDESARTAN CILEXETIL) [Concomitant]
  3. ALFAROL (ALFACALCIDOL) [Concomitant]
  4. GASMOTIN (MOSAPRIDE CITRATE) [Concomitant]
  5. LANSOPRAZOLE [Concomitant]
  6. ADALAT [Concomitant]

REACTIONS (4)
  - ANOREXIA [None]
  - HEADACHE [None]
  - HYPERGLYCAEMIA [None]
  - HYPERTENSION [None]
